FAERS Safety Report 6443498-X (Version None)
Quarter: 2009Q4

REPORT INFORMATION
  Report Type: 
  Country: None (occurrence: None)
  Receive Date: 20091113
  Receipt Date: 20091104
  Transmission Date: 20100525
  Serious: Yes (Other)
  Sender: FDA-Public Use
  Company Number: 427320

PATIENT
  Age: 49 Year
  Sex: Female

DRUGS (2)
  1. METHOTREXATE [Suspect]
     Indication: WEGENER'S GRANULOMATOSIS
  2. CYCLOPHOSPHAMIDE [Suspect]
     Indication: WEGENER'S GRANULOMATOSIS

REACTIONS (7)
  - ANAEMIA [None]
  - LABORATORY TEST ABNORMAL [None]
  - MARROW HYPERPLASIA [None]
  - MONOCYTOSIS [None]
  - MYELODYSPLASTIC SYNDROME [None]
  - SHIFT TO THE LEFT [None]
  - THROMBOCYTOPENIA [None]
